FAERS Safety Report 15870251 (Version 1)
Quarter: 2019Q1

REPORT INFORMATION
  Report Type: Other
  Country: US (occurrence: US)
  Receive Date: 20190125
  Receipt Date: 20190125
  Transmission Date: 20190417
  Serious: No
  Sender: FDA-Public Use
  Company Number: US-ACORDA-ACO_149861_2018

PATIENT
  Age: 36 Year
  Sex: Male

DRUGS (1)
  1. AMPYRA [Suspect]
     Active Substance: DALFAMPRIDINE
     Indication: MULTIPLE SCLEROSIS
     Dosage: 10 MG, BID
     Route: 048
     Dates: start: 20170523

REACTIONS (6)
  - Back pain [Unknown]
  - Musculoskeletal pain [Unknown]
  - Coccydynia [Not Recovered/Not Resolved]
  - Cough [Not Recovered/Not Resolved]
  - Dehydration [Unknown]
  - Chromaturia [Unknown]

NARRATIVE: CASE EVENT DATE: 20180503
